FAERS Safety Report 24609763 (Version 1)
Quarter: 2024Q4

REPORT INFORMATION
  Report Type: Spontaneous
  Country: US (occurrence: US)
  Receive Date: 20241112
  Receipt Date: 20241112
  Transmission Date: 20250115
  Serious: No
  Sender: SANOFI AVENTIS
  Company Number: US-SA-2024SA326100

PATIENT
  Sex: Female

DRUGS (1)
  1. ELIGLUSTAT [Suspect]
     Active Substance: ELIGLUSTAT
     Indication: Gaucher^s disease type I
     Dosage: UNK
     Route: 048

REACTIONS (1)
  - Gastrooesophageal reflux disease [Not Recovered/Not Resolved]
